FAERS Safety Report 4433569-1 (Version None)
Quarter: 2004Q3

REPORT INFORMATION
  Report Type: 
  Country: None (occurrence: None)
  Receive Date: 20040824
  Receipt Date: 20040813
  Transmission Date: 20050211
  Serious: Yes (Hospitalization, Disabling)
  Sender: FDA-Public Use
  Company Number: HQWYE285816AUG04

PATIENT
  Age: 17 Year
  Sex: Male

DRUGS (2)
  1. EFFEXOR XR [Suspect]
     Indication: PSYCHOTIC DISORDER
     Dosage: 75 MG 1X PER 1 DAY,ORAL
     Route: 048
     Dates: start: 20030501
  2. SEROQUEL [Suspect]
     Indication: PSYCHOTIC DISORDER
     Dosage: 500 MG 1X PER 1 DAY
     Dates: start: 20030501

REACTIONS (5)
  - FALL [None]
  - HYPOTENSION [None]
  - LIMB INJURY [None]
  - LOSS OF CONSCIOUSNESS [None]
  - SYNCOPE [None]
